FAERS Safety Report 10552461 (Version 1)
Quarter: 2014Q4

REPORT INFORMATION
  Report Type: Spontaneous
  Country: IT (occurrence: IT)
  Receive Date: 20141029
  Receipt Date: 20141029
  Transmission Date: 20150529
  Serious: Yes (Other)
  Sender: FDA-Public Use
  Company Number: IT-TEVA-518648ISR

PATIENT
  Age: 69 Year
  Sex: Male
  Weight: 80 kg

DRUGS (5)
  1. AVASTIN [Suspect]
     Active Substance: BEVACIZUMAB
     Indication: COLON CANCER
     Dosage: 400 MILLIGRAM DAILY;
     Route: 042
     Dates: start: 20140716, end: 20140903
  2. IRINOTECAN HOSPIRA [Suspect]
     Active Substance: IRINOTECAN
     Indication: COLON CANCER
     Dosage: 358.2 MILLIGRAM DAILY;
     Route: 042
     Dates: start: 20140716, end: 20140903
  3. MITTOVAL [Concomitant]
     Active Substance: ALFUZOSIN HYDROCHLORIDE
     Indication: BENIGN PROSTATIC HYPERPLASIA
  4. TRIATEC 5 MG [Concomitant]
     Active Substance: RAMIPRIL
     Indication: HYPERTENSION
  5. FLUOROURACILE TEVA [Suspect]
     Active Substance: FLUOROURACIL
     Indication: COLON CANCER
     Dosage: 5572 MILLIGRAM DAILY;
     Route: 042
     Dates: start: 20140716, end: 20140820

REACTIONS (3)
  - Compensatory sweating [Recovered/Resolved]
  - Cholinergic syndrome [Recovered/Resolved]
  - Flushing [Recovered/Resolved]

NARRATIVE: CASE EVENT DATE: 20140903
